FAERS Safety Report 6901934-6 (Version None)
Quarter: 2010Q3

REPORT INFORMATION
  Report Type: 
  Country: None (occurrence: None)
  Receive Date: 20100803
  Receipt Date: 20080403
  Transmission Date: 20110219
  Serious: Yes (Other)
  Sender: FDA-Public Use
  Company Number: US-PFIZER INC-2008029512

PATIENT
  Sex: Female
  Weight: 102.5 kg

DRUGS (5)
  1. LYRICA [Suspect]
     Indication: FIBROMYALGIA
     Dosage: 1 EVERY 3 DAYS
     Dates: start: 20070101, end: 20080301
  2. LYRICA [Suspect]
     Indication: NERVE INJURY
  3. TRAZODONE [Concomitant]
  4. SANTYL [Concomitant]
  5. SYNTHROID [Concomitant]

REACTIONS (14)
  - ANAEMIA [None]
  - CONFUSIONAL STATE [None]
  - DECREASED APPETITE [None]
  - DISTURBANCE IN ATTENTION [None]
  - DRY EYE [None]
  - FATIGUE [None]
  - NERVOUSNESS [None]
  - OEDEMA PERIPHERAL [None]
  - POLLAKIURIA [None]
  - RASH PAPULAR [None]
  - STOMATITIS [None]
  - SWELLING FACE [None]
  - THYROID DISORDER [None]
  - WEIGHT INCREASED [None]
